FAERS Safety Report 5089081-2 (Version None)
Quarter: 2006Q3

REPORT INFORMATION
  Report Type: 
  Country: None (occurrence: None)
  Receive Date: 20060822
  Receipt Date: 20060807
  Transmission Date: 20061208
  Serious: Yes (Disabling, Other)
  Sender: FDA-Public Use
  Company Number: DE200608001739

PATIENT
  Age: 63 Year
  Sex: Female
  Weight: 63 kg

DRUGS (2)
  1. FORTEO [Suspect]
     Indication: OSTEOPOROSIS
     Dosage: SUBCUTANEOUS
     Route: 058
  2. FORTEO [Concomitant]

REACTIONS (2)
  - DIZZINESS [None]
  - FIBROCYSTIC BREAST DISEASE [None]
